FAERS Safety Report 25169618 (Version 1)
Quarter: 2025Q2

REPORT INFORMATION
  Report Type: Report from Study
  Country: ZA (occurrence: ZA)
  Receive Date: 20250407
  Receipt Date: 20250407
  Transmission Date: 20250717
  Serious: Yes (Hospitalization)
  Sender: ROCHE
  Company Number: ZA-ROCHE-10000244213

PATIENT
  Sex: Female

DRUGS (2)
  1. OCREVUS [Suspect]
     Active Substance: OCRELIZUMAB
     Indication: Relapsing-remitting multiple sclerosis
     Dosage: THERE AFTER 600MG EVERY 6 MONTHS
     Route: 042
     Dates: start: 20240514
  2. AUBAGIO [Concomitant]
     Active Substance: TERIFLUNOMIDE
     Dates: start: 2017

REACTIONS (7)
  - Relapsing multiple sclerosis [Unknown]
  - Expanded disability status scale score increased [Unknown]
  - Walking aid user [Unknown]
  - Ovarian cyst [Unknown]
  - Paranasal sinus mucosal hypertrophy [Unknown]
  - Bone marrow disorder [Unknown]
  - Multiple sclerosis [Unknown]
